FAERS Safety Report 4811313-3 (Version None)
Quarter: 2005Q4

REPORT INFORMATION
  Report Type: 
  Country: None (occurrence: None)
  Receive Date: 20051026
  Receipt Date: 20051026
  Transmission Date: 20060501
  Serious: No
  Sender: FDA-Public Use
  Company Number: None

PATIENT
  Age: 43 Year
  Sex: Male
  Weight: 86.1834 kg

DRUGS (2)
  1. OXYCONTIN [Suspect]
  2. PERCOCET [Suspect]

REACTIONS (7)
  - DRUG DEPENDENCE [None]
  - ECONOMIC PROBLEM [None]
  - INCORRECT DOSE ADMINISTERED [None]
  - INCORRECT ROUTE OF DRUG ADMINISTRATION [None]
  - MARITAL PROBLEM [None]
  - PARTNER STRESS [None]
  - POLYSUBSTANCE ABUSE [None]
